FAERS Safety Report 25868758 (Version 1)
Quarter: 2025Q4

REPORT INFORMATION
  Report Type: Spontaneous
  Country: PR (occurrence: PR)
  Receive Date: 20251001
  Receipt Date: 20251001
  Transmission Date: 20260118
  Serious: No
  Sender: ABBVIE
  Company Number: PR-ABBVIE-6483045

PATIENT
  Sex: Female

DRUGS (3)
  1. RISANKIZUMAB [Suspect]
     Active Substance: RISANKIZUMAB
     Indication: Product used for unknown indication
     Dosage: DOSE 1
     Route: 058
  2. RISANKIZUMAB [Suspect]
     Active Substance: RISANKIZUMAB
     Dosage: DOSE 2
     Route: 058
  3. RISANKIZUMAB [Suspect]
     Active Substance: RISANKIZUMAB
     Dosage: DOSE 3
     Route: 058

REACTIONS (1)
  - Inflammation [Not Recovered/Not Resolved]
